FAERS Safety Report 4320346-5 (Version None)
Quarter: 2004Q1

REPORT INFORMATION
  Report Type: 
  Country: None (occurrence: None)
  Receive Date: 20040317
  Receipt Date: 20040311
  Transmission Date: 20041129
  Serious: Yes (Death)
  Sender: FDA-Public Use
  Company Number: 200410122BYL

PATIENT
  Age: 67 Year
  Sex: Male
  Weight: 54 kg

DRUGS (11)
  1. CIPROXAN- I.V. 300 (CIPROFLOXACIN) [Suspect]
     Indication: PNEUMONIA
     Dosage: 300 MG, BID, INTRAVENOUS DRIP
     Route: 041
     Dates: start: 20031009, end: 20031020
  2. FUNGURARD (ANTIFUNGALS) [Suspect]
     Dosage: 100 MG, TOTAL DAILY, INTRAVENOUS DRIP
     Route: 041
     Dates: start: 20030925, end: 20031019
  3. GRAN [Concomitant]
  4. BAKTAR [Concomitant]
  5. TAKEPRON [Concomitant]
  6. MAGNESIUM OXIDE [Concomitant]
  7. LASIX [Concomitant]
  8. MUCODYNE [Concomitant]
  9. DIPYRIDAMOLE [Concomitant]
  10. MINOMYCIN [Concomitant]
  11. PRIMAXIN [Concomitant]

REACTIONS (2)
  - LIVER DISORDER [None]
  - MULTIPLE MYELOMA [None]
